FAERS Safety Report 25786088 (Version 2)
Quarter: 2025Q3

REPORT INFORMATION
  Report Type: Report from Study
  Country: US (occurrence: US)
  Receive Date: 20250910
  Receipt Date: 20250929
  Transmission Date: 20251020
  Serious: Yes (Other)
  Sender: SUNOVION
  Company Number: US-SMPA-2025SPA011335

PATIENT
  Age: 68 Year
  Sex: Male

DRUGS (6)
  1. ORGOVYX [Suspect]
     Active Substance: RELUGOLIX
     Indication: Prostate cancer
     Route: 048
  2. ORGOVYX [Suspect]
     Active Substance: RELUGOLIX
     Route: 048
  3. ABIRATERONE [Concomitant]
     Active Substance: ABIRATERONE
     Indication: Product used for unknown indication
     Route: 048
  4. ABIRATERONE [Concomitant]
     Active Substance: ABIRATERONE
     Dosage: 2 DF, QD
     Route: 048
     Dates: start: 202509, end: 202509
  5. ABIRATERONE [Concomitant]
     Active Substance: ABIRATERONE
     Route: 048
  6. PREDNISONE [Concomitant]
     Active Substance: PREDNISONE

REACTIONS (3)
  - Lyme disease [Unknown]
  - Liver function test increased [Unknown]
  - Ventricular extrasystoles [Unknown]
